FAERS Safety Report 8070442-4 (Version None)
Quarter: 2012Q1

REPORT INFORMATION
  Report Type: 
  Country: None (occurrence: None)
  Receive Date: 20120125
  Receipt Date: 20120118
  Transmission Date: 20120608
  Serious: Yes (Death, Hospitalization)
  Sender: FDA-Public Use
  Company Number: KH-ROCHE-1031599

PATIENT
  Age: 4 Year
  Sex: Female
  Weight: 20 kg

DRUGS (1)
  1. ROCEPHIN [Suspect]
     Indication: INFLUENZA
     Route: 065
     Dates: start: 20110416, end: 20110416

REACTIONS (1)
  - INFLUENZA [None]
